FAERS Safety Report 9651142 (Version 1)
Quarter: 2013Q4

REPORT INFORMATION
  Report Type: Spontaneous
  Country: JP (occurrence: JP)
  Receive Date: 20131029
  Receipt Date: 20131029
  Transmission Date: 20140711
  Serious: Yes (Death)
  Sender: FDA-Public Use
  Company Number: JP-SA-2013SA109415

PATIENT
  Age: 67 Year
  Sex: Male

DRUGS (4)
  1. FLUOROURACIL [Suspect]
     Indication: SQUAMOUS CELL CARCINOMA OF THE ORAL CAVITY
     Dosage: 673.2 MG/M2/ 5 DAY
     Route: 065
  2. DOCETAXEL [Suspect]
     Indication: SQUAMOUS CELL CARCINOMA OF THE ORAL CAVITY
     Route: 065
  3. CISPLATIN [Suspect]
     Indication: SQUAMOUS CELL CARCINOMA OF THE ORAL CAVITY
     Route: 065
  4. THERAPEUTIC RADIOPHARMACEUTICALS [Suspect]
     Indication: SQUAMOUS CELL CARCINOMA OF THE ORAL CAVITY
     Route: 065

REACTIONS (10)
  - Renal failure acute [Fatal]
  - Oliguria [Fatal]
  - Malaise [Fatal]
  - Headache [Fatal]
  - Diarrhoea [Fatal]
  - Electrolyte imbalance [Fatal]
  - Blood creatinine increased [Fatal]
  - Depressed level of consciousness [Fatal]
  - Dyspnoea [Fatal]
  - Anuria [Fatal]
